FAERS Safety Report 9632051 (Version 1)
Quarter: 2013Q4

REPORT INFORMATION
  Report Type: Spontaneous
  Country: CA (occurrence: CA)
  Receive Date: 20131018
  Receipt Date: 20131018
  Transmission Date: 20140711
  Serious: Yes (Other)
  Sender: FDA-Public Use
  Company Number: CA-PFIZER INC-2013279393

PATIENT
  Age: 70 Year
  Sex: Female

DRUGS (1)
  1. TECTA [Suspect]
     Dosage: 40 MG, 2X/DAY
     Route: 048
     Dates: start: 20120122

REACTIONS (3)
  - Nodule [Not Recovered/Not Resolved]
  - Malaise [Not Recovered/Not Resolved]
  - Nausea [Not Recovered/Not Resolved]
